FAERS Safety Report 9671172 (Version 1)
Quarter: 2013Q4

REPORT INFORMATION
  Report Type: Spontaneous
  Country: US (occurrence: None)
  Receive Date: 20131105
  Receipt Date: 20131105
  Transmission Date: 20140711
  Serious: Yes (Life-Threatening, Hospitalization)
  Sender: FDA-Public Use
  Company Number: None

PATIENT
  Age: 61 Year
  Sex: Male

DRUGS (1)
  1. ACTHAR [Suspect]
     Indication: RHEUMATOID ARTHRITIS
     Dates: start: 20130926, end: 20131002

REACTIONS (6)
  - Lethargy [None]
  - Feeling abnormal [None]
  - Dyspnoea [None]
  - Hyperhidrosis [None]
  - Body temperature increased [None]
  - Blood pressure decreased [None]
